FAERS Safety Report 8271935-7 (Version None)
Quarter: 2012Q2

REPORT INFORMATION
  Report Type: 
  Country: None (occurrence: None)
  Receive Date: 20120410
  Receipt Date: 20120319
  Transmission Date: 20120825
  Serious: No
  Sender: FDA-Public Use
  Company Number: US-ROXANE LABORATORIES, INC.-2012-RO-00892RO

PATIENT
  Sex: Female

DRUGS (2)
  1. PREDNISONE TAB [Suspect]
  2. CODEINE SUL TAB [Suspect]

REACTIONS (2)
  - DYSPNOEA [None]
  - NAUSEA [None]
